FAERS Safety Report 8446160-7 (Version None)
Quarter: 2012Q2

REPORT INFORMATION
  Report Type: 
  Country: None (occurrence: None)
  Receive Date: 20120323
  Receipt Date: 20111123
  Transmission Date: 20120825
  Serious: Yes (Hospitalization)
  Sender: FDA-Public Use
  Company Number: 163-21880-11090278

PATIENT
  Age: 65 Year
  Sex: Female
  Weight: 83.9 kg

DRUGS (12)
  1. DEXAMETHASONE [Concomitant]
  2. NORVASC [Concomitant]
  3. ZOMETA [Concomitant]
  4. VENTOLIN [Concomitant]
  5. SODIUM CARBONATE (SODIUM CARBONATE) [Concomitant]
  6. CALCIUM CARBONATE [Concomitant]
  7. REVLIMID [Suspect]
     Indication: MULTIPLE MYELOMA
     Dosage: 25 MG, 3 FOR 4 WEEKS, PO
     Route: 048
     Dates: start: 20101227
  8. COUMADIN (WARFARIN SODIUIM) [Concomitant]
  9. SYNTHROID [Concomitant]
  10. VESICARE [Concomitant]
  11. NEXIUM [Concomitant]
  12. SPIRIVA [Concomitant]

REACTIONS (1)
  - CYSTITIS [None]
